FAERS Safety Report 25277461 (Version 1)
Quarter: 2025Q2

REPORT INFORMATION
  Report Type: Spontaneous
  Country: DE (occurrence: DE)
  Receive Date: 20250507
  Receipt Date: 20250507
  Transmission Date: 20250717
  Serious: Yes (Life-Threatening, Hospitalization, Congenital Anomaly)
  Sender: UCB
  Company Number: DE-DCGMA-25204964

PATIENT
  Age: 4 Day
  Sex: Female
  Weight: 3.5 kg

DRUGS (2)
  1. CIMZIA [Suspect]
     Active Substance: CERTOLIZUMAB PEGOL
     Indication: Rheumatoid arthritis
     Dosage: DAILY DOSE: 200 MG EVERY 14 DAYS
     Route: 064
  2. ASPIRIN [Concomitant]
     Active Substance: ASPIRIN
     Indication: Product used for unknown indication
     Dosage: DURATION: ENTIRE PREGNANCY UNTIL TWO WEEKS BEFORE DELIVERY DAILY DOSE: 150 MG EVERY 1 DAY
     Route: 064

REACTIONS (5)
  - Hydrocephalus [Not Recovered/Not Resolved]
  - Seizure [Not Recovered/Not Resolved]
  - Posthaemorrhagic hydrocephalus [Not Recovered/Not Resolved]
  - Intraventricular haemorrhage neonatal [Not Recovered/Not Resolved]
  - Maternal exposure during pregnancy [Unknown]

NARRATIVE: CASE EVENT DATE: 20241206
